FAERS Safety Report 25765275 (Version 1)
Quarter: 2025Q3

REPORT INFORMATION
  Report Type: Spontaneous
  Country: EU (occurrence: EU)
  Receive Date: 20250905
  Receipt Date: 20250905
  Transmission Date: 20251020
  Serious: Yes (Disabling)
  Sender: RANBAXY
  Company Number: EU-SEMPA-2025-003701

PATIENT
  Age: 58 Year
  Sex: Female

DRUGS (3)
  1. SERTRALINE [Suspect]
     Active Substance: SERTRALINE HYDROCHLORIDE
     Indication: Product used for unknown indication
     Dosage: 50 MILLIGRAM, DAILY, 1X1
     Route: 065
     Dates: start: 2014, end: 2024
  2. LANSOPRAZOLE [Concomitant]
     Active Substance: LANSOPRAZOLE
     Indication: Product used for unknown indication
     Route: 065
  3. DETRUSITOL [Concomitant]
     Active Substance: TOLTERODINE TARTRATE
     Indication: Product used for unknown indication
     Route: 065

REACTIONS (9)
  - Dysphagia [Unknown]
  - Muscle fatigue [Unknown]
  - Muscular weakness [Not Recovered/Not Resolved]
  - Myalgia [Unknown]
  - Metabolic function test abnormal [Not Recovered/Not Resolved]
  - Nausea [Unknown]
  - Hepatic enzyme abnormal [Unknown]
  - Fatigue [Unknown]
  - Biopsy muscle abnormal [Not Recovered/Not Resolved]

NARRATIVE: CASE EVENT DATE: 20160101
